FAERS Safety Report 15764944 (Version 1)
Quarter: 2018Q4

REPORT INFORMATION
  Report Type: Spontaneous
  Country: US (occurrence: US)
  Receive Date: 20181227
  Receipt Date: 20181227
  Transmission Date: 20190205
  Serious: Yes (Other)
  Sender: FDA-Public Use
  Company Number: US-SA-2018SA391541

PATIENT
  Sex: Female

DRUGS (2)
  1. PLAVIX [Suspect]
     Active Substance: CLOPIDOGREL BISULFATE
  2. ELIQUIS [Suspect]
     Active Substance: APIXABAN

REACTIONS (6)
  - Rhinorrhoea [Unknown]
  - Feeling abnormal [Unknown]
  - Haemorrhage [Unknown]
  - Neoplasm malignant [Unknown]
  - Nasopharyngitis [Unknown]
  - Cerebrovascular accident [Unknown]
